FAERS Safety Report 8740284 (Version 2)
Quarter: 2013Q4

REPORT INFORMATION
  Report Type: Spontaneous
  Country: US (occurrence: US)
  Receive Date: 20120823
  Receipt Date: 20131101
  Transmission Date: 20140711
  Serious: No
  Sender: FDA-Public Use
  Company Number: US-009507513-1208USA002262

PATIENT
  Sex: Male

DRUGS (4)
  1. TEMODAR [Suspect]
     Indication: BRAIN NEOPLASM
     Dosage: 150 MG, QD
     Route: 048
     Dates: start: 20120719
  2. TEMODAR [Suspect]
     Dosage: 150 MG, QD
     Route: 048
     Dates: start: 20120719
  3. TEMODAR [Suspect]
     Dosage: 150 MG, QD
     Route: 048
     Dates: start: 20120719
  4. TEMODAR [Suspect]
     Indication: BRAIN NEOPLASM
     Dosage: 150 MG, QD
     Route: 048
     Dates: start: 20120719

REACTIONS (1)
  - Post procedural infection [Not Recovered/Not Resolved]
